FAERS Safety Report 7233521-7 (Version None)
Quarter: 2011Q1

REPORT INFORMATION
  Report Type: 
  Country: None (occurrence: None)
  Receive Date: 20110119
  Receipt Date: 20110110
  Transmission Date: 20110831
  Serious: Yes (Hospitalization, Other)
  Sender: FDA-Public Use
  Company Number: US-ABBOTT-10P-163-0639394-00

PATIENT
  Sex: Female
  Weight: 72.64 kg

DRUGS (12)
  1. VICODIN [Concomitant]
     Indication: PAIN
     Route: 048
  2. BENADRYL [Concomitant]
     Indication: HYPERSENSITIVITY
     Dosage: 25-50 MG AS NEEDED
  3. FOLIC ACID [Concomitant]
     Indication: VITAMIN SUPPLEMENTATION
     Route: 048
  4. LEVOXYL [Concomitant]
     Indication: AUTOIMMUNE THYROIDITIS
     Route: 048
  5. SUDAFED 12 HOUR [Concomitant]
     Indication: EUSTACHIAN TUBE DISORDER
  6. HUMIRA [Suspect]
     Route: 058
     Dates: start: 20110108, end: 20110108
  7. SUDAFED 12 HOUR [Concomitant]
     Indication: HYPERSENSITIVITY
     Route: 048
  8. VITAMIN B-12 [Concomitant]
     Indication: VITAMIN SUPPLEMENTATION
     Route: 048
  9. HUMIRA [Suspect]
     Indication: JUVENILE ARTHRITIS
     Route: 058
     Dates: start: 20050101, end: 20101101
  10. METHOTREXATE [Suspect]
     Indication: JUVENILE ARTHRITIS
     Route: 048
     Dates: start: 20050101, end: 20050101
  11. MOBIC [Concomitant]
     Indication: JUVENILE ARTHRITIS
     Route: 048
  12. CLONAZEPAM [Concomitant]
     Indication: ANXIETY
     Route: 048

REACTIONS (19)
  - PANCREATIC PSEUDOCYST [None]
  - PANCREATIC DISORDER [None]
  - INJECTION SITE HAEMATOMA [None]
  - POLYP [None]
  - MYALGIA [None]
  - UTERINE LEIOMYOMA [None]
  - HYPOAESTHESIA ORAL [None]
  - ARTHRALGIA [None]
  - GLYCOSYLATED HAEMOGLOBIN DECREASED [None]
  - URINARY TRACT INFECTION [None]
  - PARAESTHESIA ORAL [None]
  - SWOLLEN TONGUE [None]
  - HYPERTENSION [None]
  - HEADACHE [None]
  - NAUSEA [None]
  - BLOOD GLUCOSE FLUCTUATION [None]
  - INFLUENZA [None]
  - GLYCOSYLATED HAEMOGLOBIN INCREASED [None]
  - THROAT IRRITATION [None]
